FAERS Safety Report 10473839 (Version 5)
Quarter: 2015Q4

REPORT INFORMATION
  Report Type: Report from Study
  Country: US (occurrence: US)
  Receive Date: 20140924
  Receipt Date: 20151015
  Transmission Date: 20160304
  Serious: Yes (Hospitalization)
  Sender: FDA-Public Use
  Company Number: US-SA-2014SA003479

PATIENT
  Age: 66 Year
  Sex: Female

DRUGS (8)
  1. AUBAGIO [Suspect]
     Active Substance: TERIFLUNOMIDE
     Indication: MULTIPLE SCLEROSIS
     Route: 048
  2. OXYBUTYNIN [Concomitant]
     Active Substance: OXYBUTYNIN
  3. ATORVASTATIN [Concomitant]
     Active Substance: ATORVASTATIN
  4. AUBAGIO [Suspect]
     Active Substance: TERIFLUNOMIDE
     Indication: MULTIPLE SCLEROSIS
     Route: 048
     Dates: start: 20131209, end: 20140107
  5. CITALOPRAM [Concomitant]
     Active Substance: CITALOPRAM HYDROBROMIDE
  6. BETASERON [Concomitant]
     Active Substance: INTERFERON BETA-1B
     Indication: MULTIPLE SCLEROSIS
     Dates: start: 19930101, end: 20131206
  7. TRIBENZOR [Concomitant]
     Active Substance: AMLODIPINE BESYLATE\HYDROCHLOROTHIAZIDE\OLMESARTAN MEDOXOMIL
  8. METOPROLOL [Concomitant]
     Active Substance: METOPROLOL

REACTIONS (11)
  - Syncope [Unknown]
  - Frequent bowel movements [Unknown]
  - Dizziness [Recovering/Resolving]
  - Fatigue [Recovering/Resolving]
  - Diarrhoea [Recovered/Resolved]
  - Drug dose omission [Unknown]
  - Asthenia [Recovering/Resolving]
  - Anaemia [Unknown]
  - Therapeutic response unexpected [Unknown]
  - Knee arthroplasty [Unknown]
  - Faeces soft [Unknown]

NARRATIVE: CASE EVENT DATE: 201401
